FAERS Safety Report 5567977-2 (Version None)
Quarter: 2007Q4

REPORT INFORMATION
  Report Type: 
  Country: None (occurrence: None)
  Receive Date: 20071218
  Receipt Date: 20071218
  Transmission Date: 20080405
  Serious: No
  Sender: FDA-Public Use
  Company Number: None

PATIENT
  Age: 33 Year
  Sex: Male
  Weight: 81.6475 kg

DRUGS (6)
  1. RISPERIDONE [Suspect]
     Dosage: 6MG PO
     Route: 048
  2. RISPERIDONE [Concomitant]
  3. MULTI-VITAMIN [Concomitant]
  4. BENZTROPINE [Concomitant]
  5. LORATADINE [Concomitant]
  6. LORAZEPAM [Concomitant]

REACTIONS (2)
  - BLOOD CREATINE PHOSPHOKINASE INCREASED [None]
  - NEUROLEPTIC MALIGNANT SYNDROME [None]
